FAERS Safety Report 19794738 (Version 7)
Quarter: 2022Q4

REPORT INFORMATION
  Report Type: Report from Study
  Country: AU (occurrence: AU)
  Receive Date: 20210906
  Receipt Date: 20221115
  Transmission Date: 20230113
  Serious: Yes (Life-Threatening, Hospitalization, Other)
  Sender: FDA-Public Use
  Company Number: AU-TAKEDA-2021TUS052947

PATIENT
  Age: 28 Year
  Sex: Male
  Weight: 63 kg

DRUGS (16)
  1. TEDUGLUTIDE [Suspect]
     Active Substance: TEDUGLUTIDE
     Indication: Short-bowel syndrome
     Dosage: 0.32 MILLILITER, QD
     Route: 058
     Dates: start: 20210419, end: 20220913
  2. TEDUGLUTIDE [Suspect]
     Active Substance: TEDUGLUTIDE
     Indication: Short-bowel syndrome
     Dosage: 0.32 MILLILITER, QD
     Route: 058
     Dates: start: 20210419, end: 20220913
  3. TEDUGLUTIDE [Suspect]
     Active Substance: TEDUGLUTIDE
     Indication: Short-bowel syndrome
     Dosage: 0.32 MILLILITER, QD
     Route: 058
     Dates: start: 20210419, end: 20220913
  4. TEDUGLUTIDE [Suspect]
     Active Substance: TEDUGLUTIDE
     Indication: Short-bowel syndrome
     Dosage: 0.32 MILLILITER, QD
     Route: 058
     Dates: start: 20210419, end: 20220913
  5. TEDUGLUTIDE [Suspect]
     Active Substance: TEDUGLUTIDE
     Indication: Gastrointestinal disorder
  6. TEDUGLUTIDE [Suspect]
     Active Substance: TEDUGLUTIDE
     Indication: Gastrointestinal disorder
  7. TEDUGLUTIDE [Suspect]
     Active Substance: TEDUGLUTIDE
     Indication: Gastrointestinal disorder
  8. TEDUGLUTIDE [Suspect]
     Active Substance: TEDUGLUTIDE
     Indication: Gastrointestinal disorder
  9. VITAMIN D [Concomitant]
     Active Substance: VITAMIN D NOS
     Dosage: 1 DOSAGE FORM, QD
     Route: 048
  10. VITAMIN D [Concomitant]
     Active Substance: VITAMIN D NOS
     Dosage: 1 DOSAGE FORM, TID
     Route: 048
  11. BACLOFEN [Concomitant]
     Active Substance: BACLOFEN
     Dosage: 1 DOSAGE FORM, BID
     Route: 048
  12. PANTOPRAZOLE [Concomitant]
     Active Substance: PANTOPRAZOLE
     Dosage: 1 DOSAGE FORM, QD
     Route: 048
  13. ESOMEPRAZOLE [Concomitant]
     Active Substance: ESOMEPRAZOLE
     Dosage: 1 DOSAGE FORM, QD
     Route: 048
  14. LOPERAMIDE [Concomitant]
     Active Substance: LOPERAMIDE
     Dosage: 2 DOSAGE FORM, TID
     Route: 048
  15. CODEINE [Concomitant]
     Active Substance: CODEINE
     Dosage: 1 DOSAGE FORM, BID
     Route: 048
  16. RIVAROXABAN [Concomitant]
     Active Substance: RIVAROXABAN
     Dosage: 1 DOSAGE FORM, QD
     Route: 048

REACTIONS (17)
  - Abdominal pain [Recovering/Resolving]
  - Tachycardia [Recovering/Resolving]
  - Cholecystitis [Recovered/Resolved]
  - Respiratory rate increased [Recovering/Resolving]
  - Decubitus ulcer [Recovering/Resolving]
  - Vomiting [Unknown]
  - Gastrointestinal stoma output abnormal [Unknown]
  - Weight loss poor [Unknown]
  - Pneumonia aspiration [Recovered/Resolved]
  - Biliary sepsis [Recovered/Resolved]
  - Postoperative ileus [Recovered/Resolved]
  - Respiratory failure [Recovering/Resolving]
  - Gastrointestinal stoma output decreased [Unknown]
  - Nephrolithiasis [Unknown]
  - Large intestinal stenosis [Unknown]
  - Gastric mucosal lesion [Unknown]
  - Weight increased [Unknown]

NARRATIVE: CASE EVENT DATE: 20220614
